FAERS Safety Report 24460718 (Version 5)
Quarter: 2025Q3

REPORT INFORMATION
  Report Type: Spontaneous
  Country: EU (occurrence: EU)
  Receive Date: 20241018
  Receipt Date: 20250911
  Transmission Date: 20251020
  Serious: Yes (Other)
  Sender: ORGANON
  Company Number: EU-002147023-NVSC2023DE259432

PATIENT
  Age: 77 Year
  Sex: Male
  Weight: 77 kg

DRUGS (72)
  1. MOMETASONE FUROATE [Suspect]
     Active Substance: MOMETASONE FUROATE
     Indication: Product used for unknown indication
     Dosage: 2 DOSAGE FORM, QD
     Route: 065
  2. MOMETASONE FUROATE [Suspect]
     Active Substance: MOMETASONE FUROATE
     Dosage: 2 DOSAGE FORM, Q12H
     Route: 065
  3. OLMESARTAN MEDOXOMIL [Suspect]
     Active Substance: OLMESARTAN MEDOXOMIL
     Indication: Product used for unknown indication
     Route: 065
  4. TADALAFIL [Suspect]
     Active Substance: TADALAFIL
     Indication: Product used for unknown indication
     Route: 065
  5. TADALAFIL [Suspect]
     Active Substance: TADALAFIL
     Route: 065
  6. CRESTOR [Suspect]
     Active Substance: ROSUVASTATIN CALCIUM
     Indication: Product used for unknown indication
     Route: 048
  7. CRESTOR [Suspect]
     Active Substance: ROSUVASTATIN CALCIUM
     Route: 065
  8. RIVAROXABAN [Suspect]
     Active Substance: RIVAROXABAN
     Indication: Product used for unknown indication
     Route: 065
  9. FLUTICASONE [Suspect]
     Active Substance: FLUTICASONE
     Indication: Dysphonia
     Route: 065
  10. BISOPROLOL FUMARATE [Suspect]
     Active Substance: BISOPROLOL FUMARATE
     Indication: Product used for unknown indication
     Dates: start: 2018, end: 20201210
  11. ASPIRIN [Suspect]
     Active Substance: ASPIRIN
     Indication: Product used for unknown indication
     Route: 065
  12. PANTOTHENIC ACID [Suspect]
     Active Substance: PANTOTHENIC ACID
     Indication: Product used for unknown indication
     Dates: start: 2018
  13. IBUPROFEN [Suspect]
     Active Substance: IBUPROFEN
     Indication: Product used for unknown indication
     Dosage: UNK (AS NECESSARY, PRN)
     Route: 048
  14. IBUPROFEN [Suspect]
     Active Substance: IBUPROFEN
     Route: 048
  15. ROSUVASTATIN [Suspect]
     Active Substance: ROSUVASTATIN
     Indication: Product used for unknown indication
     Route: 048
  16. EVOLOCUMAB [Suspect]
     Active Substance: EVOLOCUMAB
     Indication: Product used for unknown indication
     Route: 065
  17. EVOLOCUMAB [Suspect]
     Active Substance: EVOLOCUMAB
     Dosage: 1 DOSAGE FORM, ONCE EVERY 1 WK (QW)
     Route: 065
  18. TOCOPHEROL [Suspect]
     Active Substance: TOCOPHEROL
     Indication: Product used for unknown indication
     Route: 065
  19. TOCOPHEROL [Suspect]
     Active Substance: TOCOPHEROL
     Dosage: 2000 IU, QW(20000 IU, WE (UNK UNK, UNKNOWN Q2W20000 UNK, QW)
     Route: 065
  20. DICLOFENAC [Suspect]
     Active Substance: DICLOFENAC
     Indication: Product used for unknown indication
     Route: 065
     Dates: start: 2018
  21. BIOTIN [Suspect]
     Active Substance: BIOTIN
     Indication: Product used for unknown indication
     Route: 065
  22. BIOTIN [Suspect]
     Active Substance: BIOTIN
     Dosage: 1 DOSAGE FORM, QD(1 DF, QD )
     Route: 065
  23. POTASSIUM ASPARTATE [Suspect]
     Active Substance: POTASSIUM ASPARTATE
     Indication: Product used for unknown indication
     Route: 065
  24. CALCIUM [Suspect]
     Active Substance: CALCIUM
     Indication: Product used for unknown indication
     Route: 065
  25. CALCIUM [Suspect]
     Active Substance: CALCIUM
     Route: 065
  26. CALCIUM [Suspect]
     Active Substance: CALCIUM
     Route: 065
  27. CALCIUM [Suspect]
     Active Substance: CALCIUM
     Route: 065
  28. TAMSULOSIN HYDROCHLORIDE [Suspect]
     Active Substance: TAMSULOSIN HYDROCHLORIDE
     Indication: Product used for unknown indication
     Route: 065
  29. ACETIC ACID\DELTAMETHRIN [Suspect]
     Active Substance: ACETIC ACID\DELTAMETHRIN
     Indication: Product used for unknown indication
     Route: 065
  30. ACETIC ACID\DELTAMETHRIN [Suspect]
     Active Substance: ACETIC ACID\DELTAMETHRIN
     Route: 065
  31. ALIROCUMAB [Suspect]
     Active Substance: ALIROCUMAB
     Indication: Product used for unknown indication
     Route: 065
  32. SOAP [Suspect]
     Active Substance: SOAP
     Indication: Bronchitis
     Route: 065
  33. SOAP [Suspect]
     Active Substance: SOAP
     Indication: Dyspnoea
     Route: 065
  34. SOAP [Suspect]
     Active Substance: SOAP
     Indication: Pneumothorax
     Route: 065
  35. SOAP [Suspect]
     Active Substance: SOAP
     Indication: Secretion discharge
     Route: 065
  36. SOAP [Suspect]
     Active Substance: SOAP
     Indication: Product used for unknown indication
     Route: 065
  37. SOAP [Suspect]
     Active Substance: SOAP
     Indication: Nasopharyngitis
     Route: 065
  38. SOAP [Suspect]
     Active Substance: SOAP
     Indication: Cough
  39. SOAP [Suspect]
     Active Substance: SOAP
     Indication: Dysphonia
  40. HERBALS\PHENYL SALICYLATE [Suspect]
     Active Substance: HERBALS\PHENYL SALICYLATE
     Indication: Bronchitis
     Route: 065
  41. HERBALS\PHENYL SALICYLATE [Suspect]
     Active Substance: HERBALS\PHENYL SALICYLATE
     Indication: Asthma
     Dosage: 10 DRP, QD(10 GTT DROPS, QD)
     Route: 065
  42. COLESEVELAM [Suspect]
     Active Substance: COLESEVELAM
     Indication: Product used for unknown indication
     Route: 065
  43. AMBROXOL [Suspect]
     Active Substance: AMBROXOL
     Indication: Product used for unknown indication
     Route: 065
  44. CLOPIDOGREL BESILATE [Suspect]
     Active Substance: CLOPIDOGREL BESILATE
     Indication: Product used for unknown indication
     Dosage: UNK, QD, (DAILY BID (1-0-1))
     Route: 065
     Dates: start: 20201210
  45. MAGNESIUM GLUCONATE [Suspect]
     Active Substance: MAGNESIUM GLUCONATE
     Indication: Product used for unknown indication
     Route: 065
  46. DIETARY SUPPLEMENT [Suspect]
     Active Substance: DIETARY SUPPLEMENT
     Indication: Product use in unapproved indication
     Route: 065
  47. MAGNESIUM OROTATE [Suspect]
     Active Substance: MAGNESIUM OROTATE
     Indication: Product used for unknown indication
     Route: 048
  48. GINKGO [Suspect]
     Active Substance: GINKGO
     Indication: Product used for unknown indication
     Dosage: 1000 MG, ONCE EVERY 12HR (1000 MG, BID (INTERVAL: 1 DAY) (UNK, STRENGTH: 500))
     Route: 065
  49. ERGOCALCIFEROL [Suspect]
     Active Substance: ERGOCALCIFEROL
     Indication: Product used for unknown indication
     Route: 065
  50. ERGOCALCIFEROL [Suspect]
     Active Substance: ERGOCALCIFEROL
     Dosage: 200 IU, QW(ROUTE: UNKNOWN, 20000  INTERNATIONAL UNIT, WEEKLY (1/W)
     Route: 065
  51. OLMESARTAN MEDOXOMIL [Suspect]
     Active Substance: OLMESARTAN MEDOXOMIL
     Indication: Product used for unknown indication
     Route: 065
  52. OLMESARTAN MEDOXOMIL [Suspect]
     Active Substance: OLMESARTAN MEDOXOMIL
     Dosage: 2000 IU, QD(1000 INTERNATIONAL UNIT, BID )
     Route: 065
  53. OLMESARTAN MEDOXOMIL [Suspect]
     Active Substance: OLMESARTAN MEDOXOMIL
     Dosage: 500 IU, Q12H
     Route: 065
  54. PRALUENT [Suspect]
     Active Substance: ALIROCUMAB
     Indication: Product used for unknown indication
     Route: 065
  55. HERBALS [Suspect]
     Active Substance: HERBALS
     Indication: Product used for unknown indication
     Route: 065
  56. MOMETASONE FUROATE [Suspect]
     Active Substance: MOMETASONE FUROATE
     Dosage: 2 DOSAGE FORM, QD(2 DF, QD,(2 DOSAGE FORM, DAILY(1 IN 0.5 DAY))
     Route: 065
  57. AMBROXOL HYDROCHLORIDE [Suspect]
     Active Substance: AMBROXOL HYDROCHLORIDE
     Indication: Product used for unknown indication
  58. BISOPROLOL [Suspect]
     Active Substance: BISOPROLOL
     Indication: Product used for unknown indication
     Dosage: 1 DOSAGE FORM(QW, ROUTE: RESPIRATORY  (INHALATION)
     Dates: start: 2018, end: 20201210
  59. GINKGO [Suspect]
     Active Substance: GINKGO
     Indication: Product used for unknown indication
     Dosage: 1000 MG, BID
     Route: 065
  60. GINKGO [Suspect]
     Active Substance: GINKGO
     Dosage: 2000 MG, BID(1000 MG, BID (INTERVAL: 1  DAY) (UNK, STRENGTH: 500); UNKNOWN )
     Route: 065
  61. MAGNESIUM OROTATE [Suspect]
     Active Substance: MAGNESIUM OROTATE
     Indication: Product used for unknown indication
     Route: 065
  62. MAGNESIUM OROTATE [Suspect]
     Active Substance: MAGNESIUM OROTATE
     Route: 065
  63. TAMSULOSIN [Suspect]
     Active Substance: TAMSULOSIN
  64. MAGNESIUMASPARTAT [Concomitant]
     Indication: Product used for unknown indication
     Route: 065
  65. MAGNESIUMASPARTAT [Concomitant]
     Dosage: 1000 MG, QD(
     Route: 065
  66. OLMESARTAN MEDOXOMIL [Concomitant]
     Active Substance: OLMESARTAN MEDOXOMIL
     Indication: Product used for unknown indication
     Route: 065
  67. MAGNESIUM ASPARTATE [Concomitant]
     Active Substance: MAGNESIUM ASPARTATE
     Indication: Product used for unknown indication
     Dosage: UNK UNK, BID (STRENGTH 500)
     Route: 065
  68. CIALIS [Concomitant]
     Active Substance: TADALAFIL
     Indication: Product used for unknown indication
     Route: 065
  69. PREDNISOLONE [Concomitant]
     Active Substance: PREDNISOLONE
     Indication: Product used for unknown indication
     Route: 065
  70. PREDNISOLONE [Concomitant]
     Active Substance: PREDNISOLONE
     Route: 065
  71. EUCALYPTUS OIL [Concomitant]
     Active Substance: EUCALYPTUS OIL
     Indication: Product used for unknown indication
     Route: 065
  72. PEPPERMINT OIL [Concomitant]
     Active Substance: PEPPERMINT OIL
     Indication: Product used for unknown indication
     Route: 065

REACTIONS (23)
  - Dyspnoea [Unknown]
  - Increased upper airway secretion [Unknown]
  - Fractional exhaled nitric oxide increased [Recovered/Resolved]
  - Plantar fasciitis [Unknown]
  - Wheezing [Unknown]
  - Coronary artery disease [Unknown]
  - Brain natriuretic peptide increased [Unknown]
  - Cardiac disorder [Unknown]
  - Atrial fibrillation [Recovered/Resolved]
  - Muscle spasms [Unknown]
  - Dyspnoea exertional [Unknown]
  - Myoglobin blood increased [Unknown]
  - Cough [Not Recovered/Not Resolved]
  - Chest discomfort [Not Recovered/Not Resolved]
  - Sensation of foreign body [Unknown]
  - Secretion discharge [Unknown]
  - Obstructive sleep apnoea syndrome [Unknown]
  - Pneumothorax [Not Recovered/Not Resolved]
  - Dysphonia [Not Recovered/Not Resolved]
  - Obstructive airways disorder [Unknown]
  - Exostosis [Unknown]
  - Eosinophilia [Unknown]
  - Nasopharyngitis [Unknown]

NARRATIVE: CASE EVENT DATE: 20180101
